FAERS Safety Report 8820711 (Version 2)
Quarter: 2012Q4

REPORT INFORMATION
  Report Type: 
  Country: US (occurrence: US)
  Receive Date: 20121002
  Receipt Date: 20121112
  Transmission Date: 20130627
  Serious: No
  Sender: FDA-Public Use
  Company Number: US-PFIZER INC-2012241902

PATIENT

DRUGS (1)
  1. ADVIL [Suspect]
     Indication: POSTOPERATIVE PAIN
     Dosage: UNK
     Dates: start: 2012

REACTIONS (1)
  - Muscle spasms [Unknown]
